FAERS Safety Report 14903963 (Version 1)
Quarter: 2018Q2

REPORT INFORMATION
  Report Type: Spontaneous
  Country: US (occurrence: US)
  Receive Date: 20180516
  Receipt Date: 20180516
  Transmission Date: 20180711
  Serious: No
  Sender: FDA-Public Use
  Company Number: US-COLLEGIUM PHARMACEUTICAL, INC.-2018CGM00080

PATIENT

DRUGS (2)
  1. XTAMPZA ER [Suspect]
     Active Substance: OXYCODONE
     Dosage: 36 MG, 2X/DAY, EVERY 12 HOURS
  2. XTAMPZA ER [Suspect]
     Active Substance: OXYCODONE
     Dosage: 72 MG, 2X/DAY, EVERY 12 HOURS

REACTIONS (3)
  - Myalgia [Unknown]
  - Headache [Unknown]
  - Hyperhidrosis [Unknown]
